FAERS Safety Report 14436887 (Version 1)
Quarter: 2018Q1

REPORT INFORMATION
  Report Type: Spontaneous
  Country: US (occurrence: US)
  Receive Date: 20180125
  Receipt Date: 20180125
  Transmission Date: 20180509
  Serious: No
  Sender: FDA-Public Use
  Company Number: None

PATIENT
  Age: 87 Year
  Sex: Female

DRUGS (1)
  1. AMPYRA [Suspect]
     Active Substance: DALFAMPRIDINE
     Indication: MULTIPLE SCLEROSIS
     Route: 048
     Dates: start: 20100820

REACTIONS (4)
  - Transferrin saturation decreased [None]
  - Blood iron decreased [None]
  - Anion gap increased [None]
  - Laboratory test abnormal [None]

NARRATIVE: CASE EVENT DATE: 20180111
